FAERS Safety Report 25390884 (Version 1)
Quarter: 2025Q2

REPORT INFORMATION
  Report Type: Spontaneous
  Country: US (occurrence: US)
  Receive Date: 20250603
  Receipt Date: 20250603
  Transmission Date: 20250716
  Serious: No
  Sender: DR REDDYS
  Company Number: US-DRL-USA-USA/2025/05/007381

PATIENT
  Sex: Male
  Weight: 113.4 kg

DRUGS (5)
  1. FLUOROURACIL [Suspect]
     Active Substance: FLUOROURACIL
     Indication: Skin cancer
     Dosage: 40 G IN 1 TUBE. APPLY CREAM TWICE DAILY FOR FOUR TO SEVEN DAYS.
     Route: 065
     Dates: start: 20250424, end: 20250508
  2. CALCIPOTRIENE [Suspect]
     Active Substance: CALCIPOTRIENE
     Indication: Skin cancer
     Route: 065
  3. ALFUZOSIN [Concomitant]
     Active Substance: ALFUZOSIN
     Indication: Bladder disorder
     Dosage: FOR SEVERAL YEARS
     Route: 065
  4. BUPROPION [Concomitant]
     Active Substance: BUPROPION
     Indication: Affective disorder
     Route: 065
  5. APIXABAN [Concomitant]
     Active Substance: APIXABAN
     Indication: Blood disorder
     Route: 065
     Dates: start: 20220203

REACTIONS (1)
  - Application site pruritus [Not Recovered/Not Resolved]
